FAERS Safety Report 4313423-6 (Version None)
Quarter: 2004Q1

REPORT INFORMATION
  Report Type: 
  Country: None (occurrence: None)
  Receive Date: 20040304
  Receipt Date: 20040217
  Transmission Date: 20041129
  Serious: No
  Sender: FDA-Public Use
  Company Number: USA040259632

PATIENT
  Age: 67 Year
  Sex: Female

DRUGS (2)
  1. ZYPREXA [Suspect]
     Dosage: 15 MG/DAY
     Route: 048
  2. CEPHALEXIN [Concomitant]

REACTIONS (1)
  - EPISTAXIS [None]
